FAERS Safety Report 25323049 (Version 1)
Quarter: 2025Q2

REPORT INFORMATION
  Report Type: Spontaneous
  Country: JP (occurrence: JP)
  Receive Date: 20250516
  Receipt Date: 20250516
  Transmission Date: 20250717
  Serious: Yes (Other)
  Sender: AMGEN
  Company Number: JP-DSJP-DS-2025-140382-

PATIENT

DRUGS (2)
  1. BEVACIZUMAB [Suspect]
     Active Substance: BEVACIZUMAB
     Indication: Hormone receptor positive HER2 negative breast cancer
     Route: 065
  2. DATROWAY [Suspect]
     Active Substance: DATOPOTAMAB DERUXTECAN-DLNK
     Indication: Hormone receptor positive HER2 negative breast cancer
     Route: 041
     Dates: start: 20250407

REACTIONS (4)
  - Retinal degeneration [Unknown]
  - Visual acuity reduced [Unknown]
  - Vision blurred [Unknown]
  - Stomatitis [Recovered/Resolved]
